FAERS Safety Report 5153168-6 (Version None)
Quarter: 2006Q4

REPORT INFORMATION
  Report Type: 
  Country: None (occurrence: None)
  Receive Date: 20061117
  Receipt Date: 20060331
  Transmission Date: 20070319
  Serious: Yes (Hospitalization)
  Sender: FDA-Public Use
  Company Number: CL-BRISTOL-MYERS SQUIBB COMPANY-13333273

PATIENT
  Age: 66 Year
  Sex: Male

DRUGS (9)
  1. CISPLATIN [Suspect]
     Indication: GASTRIC CANCER
     Dosage: CYCLE 3 = 41.5 MG, 1 IN 4 WK, IV DRIP, 29-MAR-2006 TO 29-MAR-2006
     Route: 042
     Dates: start: 20060301, end: 20060301
  2. FLUOROURACIL [Suspect]
     Indication: GASTRIC CANCER
     Dosage: CYCLE 3 = 1660 MG, 1 IN 1 DAY, IV DRIP 29-MAR-2006 TO 03-APR-2006
     Route: 042
     Dates: start: 20060301, end: 20060306
  3. DOMPERIDONE [Concomitant]
     Indication: ANTIEMETIC SUPPORTIVE CARE
     Route: 048
     Dates: start: 20051215, end: 20060406
  4. ACETAMINOPHEN [Concomitant]
     Indication: DYSPHAGIA
     Route: 048
     Dates: start: 20060222
  5. CLONAZEPAM [Concomitant]
     Indication: ANXIETY
     Route: 048
     Dates: start: 20051215
  6. POTASSIUM ACETATE [Concomitant]
     Indication: HYPOKALAEMIA
     Route: 042
     Dates: start: 20060310, end: 20060315
  7. KETOROLAC TROMETHAMINE [Concomitant]
     Indication: DYSPHAGIA
     Route: 048
     Dates: start: 20060222
  8. LOPERAMIDE [Concomitant]
     Indication: DIARRHOEA
     Route: 048
     Dates: start: 20060405
  9. PERENTEROL [Concomitant]
     Indication: DIARRHOEA
     Route: 048
     Dates: start: 20060405

REACTIONS (9)
  - ANAEMIA [None]
  - CLOSTRIDIUM DIFFICILE COLITIS [None]
  - DIARRHOEA [None]
  - HYPOALBUMINAEMIA [None]
  - HYPOKALAEMIA [None]
  - MUCOSAL INFLAMMATION [None]
  - NEUTROPENIA [None]
  - PLATELET COUNT INCREASED [None]
  - STOMATITIS [None]
